FAERS Safety Report 21636604 (Version 1)
Quarter: 2022Q4

REPORT INFORMATION
  Report Type: Report from Study
  Country: US (occurrence: US)
  Receive Date: 20221124
  Receipt Date: 20221124
  Transmission Date: 20230113
  Serious: Yes (Hospitalization)
  Sender: FDA-Public Use
  Company Number: US-ABBVIE-4209840

PATIENT
  Sex: Male

DRUGS (1)
  1. HUMIRA [Suspect]
     Active Substance: ADALIMUMAB
     Indication: Crohn^s disease
     Dosage: STRENGTH: 40MG, CITRATE FREE
     Route: 058

REACTIONS (3)
  - Pyrexia [Not Recovered/Not Resolved]
  - Malaise [Unknown]
  - SARS-CoV-2 test positive [Unknown]
